FAERS Safety Report 21378061 (Version 6)
Quarter: 2024Q1

REPORT INFORMATION
  Report Type: Spontaneous
  Country: CA (occurrence: CA)
  Receive Date: 20220926
  Receipt Date: 20240313
  Transmission Date: 20240409
  Serious: Yes (Other)
  Sender: FDA-Public Use
  Company Number: CA-CELLTRION INC.-2022CA014312

PATIENT

DRUGS (7)
  1. INFLECTRA [Suspect]
     Active Substance: INFLIXIMAB-DYYB
     Indication: Crohn^s disease
     Dosage: 400 MG, INDUCTION DOSES AT WEEK 0, 2 AND 6, THEN EVERY 8 WEEKS
     Route: 042
     Dates: start: 20210610
  2. INFLECTRA [Suspect]
     Active Substance: INFLIXIMAB-DYYB
     Dosage: 400 MG, INDUCTION DOSES AT WEEK 0, 2 AND 6, THEN EVERY 8 WEEKS
     Route: 042
     Dates: start: 20220719
  3. INFLECTRA [Suspect]
     Active Substance: INFLIXIMAB-DYYB
     Dosage: 400 MG, INDUCTION DOSES AT WEEK 0, 2 AND 6, THEN EVERY 8 WEEKS
     Route: 042
     Dates: start: 20220816
  4. INFLECTRA [Suspect]
     Active Substance: INFLIXIMAB-DYYB
     Dosage: 400 MG Q 8 WEEKS
     Route: 042
     Dates: start: 20230328
  5. INFLECTRA [Suspect]
     Active Substance: INFLIXIMAB-DYYB
     Dosage: 400 MG INDUCTION DOSES AT WEEK 0, 2 AND 6, THEN EVERY 8 WEEKS
     Route: 042
     Dates: start: 20230523
  6. CIPROFLOXACIN [Concomitant]
     Active Substance: CIPROFLOXACIN
     Dosage: UNK
  7. METRONIDAZOLE [Concomitant]
     Active Substance: METRONIDAZOLE
     Dosage: UNK

REACTIONS (5)
  - Weight increased [Unknown]
  - Polycystic ovaries [Not Recovered/Not Resolved]
  - Abdominal pain upper [Unknown]
  - Off label use [Unknown]
  - Intentional product use issue [Unknown]

NARRATIVE: CASE EVENT DATE: 20220816
